FAERS Safety Report 12681416 (Version 3)
Quarter: 2016Q4

REPORT INFORMATION
  Report Type: Spontaneous
  Country: CH (occurrence: CH)
  Receive Date: 20160824
  Receipt Date: 20161129
  Transmission Date: 20170207
  Serious: Yes (Death, Hospitalization, Other)
  Sender: FDA-Public Use
  Company Number: CH-PFIZER INC-2016397032

PATIENT
  Age: 56 Year
  Sex: Male

DRUGS (14)
  1. DAFALGAN [Concomitant]
     Active Substance: ACETAMINOPHEN
     Dosage: 100 MG
  2. ECOMUCYL [Concomitant]
     Dosage: 600 MG, 1X/DAY (1-0-0-0)
  3. TARGOCID [Suspect]
     Active Substance: TEICOPLANIN
     Dosage: UNK
     Dates: start: 20160729, end: 20160807
  4. ASPIRIN CARDIO [Concomitant]
     Active Substance: ASPIRIN
     Dosage: 100 MG, 1X/DAY
  5. METHOTREXATE SODIUM. [Suspect]
     Active Substance: METHOTREXATE SODIUM
     Indication: PSORIASIS
     Dosage: 10 MG, 1X/DAY
     Route: 048
     Dates: start: 201605, end: 20160725
  6. NOVAMINSULFON [Suspect]
     Active Substance: METAMIZOLE
     Dosage: UNK
     Dates: start: 20160729, end: 20160730
  7. NOVALGIN [Concomitant]
     Active Substance: METAMIZOLE SODIUM
     Dosage: 500 MG, UNK
  8. SEROQUEL [Concomitant]
     Active Substance: QUETIAPINE FUMARATE
     Dosage: 25 MG, 1X/DAY (0-0-0-1)
  9. PANTOZOL [Concomitant]
     Active Substance: PANTOPRAZOLE SODIUM
     Dosage: 40 MG, 1X/DAY (1-0-0-0)
  10. CITALOPRAM [Concomitant]
     Active Substance: CITALOPRAM HYDROBROMIDE
     Dosage: 20 MG, (1.5-0-0-0)
  11. LOPERAMID-MEPHA [Concomitant]
     Dosage: 2 MG, 4X/DAY (1-1-1-1)
  12. SIMVASIN SPIRIG [Concomitant]
     Dosage: 40 MG, 1X/DAY  (0-0-1-0)
  13. TAZOBAC [Suspect]
     Active Substance: PIPERACILLIN SODIUM\TAZOBACTAM SODIUM
     Dosage: UNK
     Dates: start: 20160725, end: 20160729
  14. MOTILIUM [Concomitant]
     Active Substance: DOMPERIDONE
     Dosage: 10 MG

REACTIONS (23)
  - Diarrhoea haemorrhagic [Unknown]
  - Leukopenia [Not Recovered/Not Resolved]
  - C-reactive protein increased [Unknown]
  - Mucosal inflammation [Fatal]
  - Thrombocytopenia [Not Recovered/Not Resolved]
  - Toxic encephalopathy [Unknown]
  - Toxicity to various agents [Fatal]
  - Pain [Unknown]
  - Somnolence [Unknown]
  - Metabolic encephalopathy [Unknown]
  - Inappropriate schedule of drug administration [Unknown]
  - Transaminases increased [Unknown]
  - Neutropenic colitis [Unknown]
  - Acute kidney injury [Fatal]
  - Gastrointestinal haemorrhage [Unknown]
  - Confusional state [Unknown]
  - Overdose [Unknown]
  - General physical health deterioration [Unknown]
  - Hypotension [Unknown]
  - Sepsis [Fatal]
  - Anaemia [Not Recovered/Not Resolved]
  - Liver disorder [Fatal]
  - Abdominal pain [Unknown]

NARRATIVE: CASE EVENT DATE: 201606
